FAERS Safety Report 7803877-2 (Version None)
Quarter: 2011Q4

REPORT INFORMATION
  Report Type: 
  Country: None (occurrence: None)
  Receive Date: 20111010
  Receipt Date: 20111003
  Transmission Date: 20120403
  Serious: Yes (Hospitalization)
  Sender: FDA-Public Use
  Company Number: DK-PFIZER INC-2011234856

PATIENT
  Age: 68 Year
  Sex: Female
  Weight: 56 kg

DRUGS (1)
  1. SUNITINIB MALATE [Suspect]
     Indication: METASTATIC RENAL CELL CARCINOMA
     Dosage: 25 MG, 1X/DAY, IN 28DAYS AND THEN 15 DAYS PAUSE
     Dates: start: 20071010, end: 20081117

REACTIONS (4)
  - CONFUSIONAL STATE [None]
  - GENERALISED OEDEMA [None]
  - PULMONARY EMBOLISM [None]
  - HYPERTENSION [None]
